FAERS Safety Report 14251172 (Version 4)
Quarter: 2018Q2

REPORT INFORMATION
  Report Type: Spontaneous
  Country: FR (occurrence: FR)
  Receive Date: 20171205
  Receipt Date: 20180406
  Transmission Date: 20180711
  Serious: Yes (Death, Other)
  Sender: FDA-Public Use
  Company Number: FR-BAYER-2017-226669

PATIENT
  Age: 54 Year
  Sex: Male

DRUGS (1)
  1. STIVARGA [Suspect]
     Active Substance: REGORAFENIB
     Indication: COLORECTAL CANCER METASTATIC
     Dosage: 80 MG, QD
     Dates: start: 20161115, end: 20170130

REACTIONS (7)
  - Hepatic lesion [Fatal]
  - Pulmonary mass [None]
  - Anaemia [Not Recovered/Not Resolved]
  - Off label use [None]
  - Hepatic lesion [None]
  - Lung disorder [None]
  - Lymphadenopathy mediastinal [None]

NARRATIVE: CASE EVENT DATE: 2016
